FAERS Safety Report 8422603-X (Version None)
Quarter: 2012Q2

REPORT INFORMATION
  Report Type: 
  Country: None (occurrence: None)
  Receive Date: 20120323
  Receipt Date: 20110913
  Transmission Date: 20120825
  Serious: Yes (Hospitalization)
  Sender: FDA-Public Use
  Company Number: 163-21880-11091593

PATIENT
  Age: 65 Year
  Sex: Female
  Weight: 63.5036 kg

DRUGS (5)
  1. PREDNISONE [Concomitant]
  2. DURAGESIC (FENTANYL)(POULTICE OR PATCH) [Concomitant]
  3. ELAVIL (AMITRIPTYLINE HYDROCHLORIDE)(UNKNOWN) [Concomitant]
  4. CLONAZEPAM [Concomitant]
  5. REVLIMID [Suspect]
     Indication: MYELODYSPLASTIC SYNDROME
     Dosage: 10 MG, 1 IN 1 D, PO
     Route: 048
     Dates: start: 20100728

REACTIONS (2)
  - VISUAL IMPAIRMENT [None]
  - CHEST PAIN [None]
